FAERS Safety Report 24785348 (Version 1)
Quarter: 2024Q4

REPORT INFORMATION
  Report Type: Spontaneous
  Country: US (occurrence: None)
  Receive Date: 20241227
  Receipt Date: 20241227
  Transmission Date: 20250115
  Serious: No
  Sender: Public
  Company Number: None

PATIENT
  Age: 79 Year
  Sex: Male
  Weight: 65.7 kg

DRUGS (5)
  1. IDOSE TR [Suspect]
     Active Substance: TRAVOPROST
     Indication: Eye disorder
     Dates: start: 20241205
  2. COMBIGAN [Concomitant]
     Active Substance: BRIMONIDINE TARTRATE\TIMOLOL MALEATE
  3. ROSUVASTATIN [Concomitant]
     Active Substance: ROSUVASTATIN
  4. Costco mature multivitamins [Concomitant]
  5. CALTRATE [Concomitant]
     Active Substance: CALCIUM CARBONATE

REACTIONS (3)
  - Lacrimation increased [None]
  - Eye discharge [None]
  - Application site discharge [None]

NARRATIVE: CASE EVENT DATE: 20241205
